FAERS Safety Report 12093864 (Version 5)
Quarter: 2016Q3

REPORT INFORMATION
  Report Type: Spontaneous
  Country: US (occurrence: US)
  Receive Date: 20160219
  Receipt Date: 20160715
  Transmission Date: 20161109
  Serious: Yes (Other)
  Sender: FDA-Public Use
  Company Number: US-009507513-1602USA008605

PATIENT
  Age: 32 Year
  Sex: Female
  Weight: 90.7 kg

DRUGS (2)
  1. IMPLANON [Suspect]
     Active Substance: ETONOGESTREL
     Indication: MENSTRUAL CYCLE MANAGEMENT
  2. IMPLANON [Suspect]
     Active Substance: ETONOGESTREL
     Indication: CONTRACEPTION
     Dosage: 68 MG, ONCE (EVERY 3 YEARS)
     Route: 059
     Dates: start: 201210

REACTIONS (13)
  - Haemorrhage [Unknown]
  - Implant site scar [Unknown]
  - Paraesthesia [Unknown]
  - Chest pain [Unknown]
  - Implant site fibrosis [Unknown]
  - Device difficult to use [Recovered/Resolved]
  - Gastric infection [Unknown]
  - Device difficult to use [Recovered/Resolved]
  - Incorrect drug administration duration [Unknown]
  - Weight increased [Unknown]
  - Peripheral swelling [Unknown]
  - Complication associated with device [Recovered/Resolved]
  - Product use issue [Unknown]

NARRATIVE: CASE EVENT DATE: 201210
